FAERS Safety Report 4797525-6 (Version None)
Quarter: 2005Q3

REPORT INFORMATION
  Report Type: 
  Country: None (occurrence: None)
  Receive Date: 20050929
  Receipt Date: 20050705
  Transmission Date: 20060218
  Serious: No
  Sender: FDA-Public Use
  Company Number: 05P-163-0304907-00

PATIENT
  Sex: Female

DRUGS (2)
  1. HUMIRA [Suspect]
     Dosage: 40 MG, 1IN 1 WK, SUBCUTANEOUS; 40 MG, 1 IN 2 WK, SUBCUTANEOUS
     Route: 058
     Dates: start: 20050601, end: 20050101
  2. HUMIRA [Suspect]
     Dosage: 40 MG, 1IN 1 WK, SUBCUTANEOUS; 40 MG, 1 IN 2 WK, SUBCUTANEOUS
     Route: 058
     Dates: start: 20041001, end: 20050601

REACTIONS (1)
  - DRUG INEFFECTIVE [None]
